FAERS Safety Report 8362488-3 (Version None)
Quarter: 2012Q2

REPORT INFORMATION
  Report Type: 
  Country: None (occurrence: None)
  Receive Date: 20120514
  Receipt Date: 20120514
  Transmission Date: 20120825
  Serious: Yes (Hospitalization, Other)
  Sender: FDA-Public Use
  Company Number: None

PATIENT
  Age: 55 Year
  Sex: Male
  Weight: 136.0791 kg

DRUGS (1)
  1. LYRICA [Suspect]
     Indication: PAIN
     Dosage: 200MG TWICE DAILY BID PO
     Route: 048
     Dates: start: 20040615, end: 20111204

REACTIONS (5)
  - SUICIDAL IDEATION [None]
  - SLEEP DISORDER [None]
  - DRUG DEPENDENCE [None]
  - MENTAL DISORDER [None]
  - DYSKINESIA [None]
